FAERS Safety Report 5367959-X (Version None)
Quarter: 2007Q2

REPORT INFORMATION
  Report Type: 
  Country: None (occurrence: None)
  Receive Date: 20070622
  Receipt Date: 20070615
  Transmission Date: 20071010
  Serious: Yes (Hospitalization)
  Sender: FDA-Public Use
  Company Number: DE-ABBOTT-07P-062-0371618-00

PATIENT
  Age: 60 Year
  Sex: Male

DRUGS (10)
  1. ERGENYL TABLETS [Suspect]
     Indication: BIPOLAR DISORDER
     Route: 048
  2. ARIPIPRAZOLE [Suspect]
     Indication: DRUG USE FOR UNKNOWN INDICATION
  3. PIPAMPERONE HYDROCHLORIDE [Suspect]
     Indication: DRUG USE FOR UNKNOWN INDICATION
     Route: 048
  4. MIRTAZAPINE [Suspect]
     Indication: DRUG USE FOR UNKNOWN INDICATION
     Route: 048
  5. ZOPICLONE [Suspect]
     Indication: DRUG USE FOR UNKNOWN INDICATION
     Route: 048
  6. NORTRIPTYLINE HCL [Suspect]
     Indication: DRUG USE FOR UNKNOWN INDICATION
     Route: 048
     Dates: start: 20061114, end: 20061116
  7. NORTRIPTYLINE HCL [Suspect]
     Route: 048
     Dates: start: 20061117, end: 20061120
  8. NORTRIPTYLINE HCL [Suspect]
     Route: 048
     Dates: start: 20061121, end: 20061125
  9. NORTRIPTYLINE HCL [Suspect]
     Route: 048
     Dates: start: 20061126, end: 20061127
  10. ACETYLSALICYLIC ACID SRT [Concomitant]
     Indication: DRUG USE FOR UNKNOWN INDICATION
     Route: 048

REACTIONS (6)
  - DISORIENTATION [None]
  - DRUG LEVEL INCREASED [None]
  - DYSARTHRIA [None]
  - FALL [None]
  - RESTLESSNESS [None]
  - VERTIGO [None]
